FAERS Safety Report 4417376-1 (Version None)
Quarter: 2004Q3

REPORT INFORMATION
  Report Type: 
  Country: None (occurrence: None)
  Receive Date: 20040702
  Receipt Date: 20040426
  Transmission Date: 20050211
  Serious: Yes (Other)
  Sender: FDA-Public Use
  Company Number: 2004015283

PATIENT
  Age: 70 Year
  Sex: Female
  Weight: 85.7298 kg

DRUGS (6)
  1. ACCUPRIL [Suspect]
     Indication: HYPERTENSION
     Dosage: 10 MG (DAILY), ORAL
     Route: 048
     Dates: start: 20040108, end: 20040224
  2. CLOPIDOGEL SULFATE (CLOPIDOGREL SULFATE) [Concomitant]
  3. PRAVASTATIN SODIUM [Concomitant]
  4. ASPIRIN [Concomitant]
  5. FISH OIL (FISH OIL) [Concomitant]
  6. METOPROLOL SUCCINATE [Concomitant]

REACTIONS (4)
  - ANGIONEUROTIC OEDEMA [None]
  - BLOOD PRESSURE INCREASED [None]
  - HYPERSENSITIVITY [None]
  - LYMPHADENOPATHY [None]
